FAERS Safety Report 5321564-X (Version None)
Quarter: 2007Q2

REPORT INFORMATION
  Report Type: 
  Country: None (occurrence: None)
  Receive Date: 20070220
  Receipt Date: 20061102
  Transmission Date: 20071010
  Serious: No
  Sender: FDA-Public Use
  Company Number: TPA2006A01980

PATIENT
  Sex: Female

DRUGS (6)
  1. ROZEREM [Suspect]
     Dosage: PER ORAL
     Route: 048
  2. TRAMADOL HCL [Concomitant]
  3. ACIPHEX [Concomitant]
  4. MISOPROSTOL [Concomitant]
  5. IBUPROFEN [Concomitant]
  6. ACETAMINOPHEN [Concomitant]

REACTIONS (2)
  - AMNESIA [None]
  - HAIR GROWTH ABNORMAL [None]
